FAERS Safety Report 8515333-7 (Version None)
Quarter: 2012Q3

REPORT INFORMATION
  Report Type: 
  Country: None (occurrence: None)
  Receive Date: 20120717
  Receipt Date: 20120707
  Transmission Date: 20120928
  Serious: Yes (Hospitalization)
  Sender: FDA-Public Use
  Company Number: US-PFIZER INC-2012093143

PATIENT
  Sex: Male
  Weight: 79.4 kg

DRUGS (13)
  1. DOCUSATE [Concomitant]
     Indication: CONSTIPATION
     Dosage: UNK
     Dates: start: 20100614
  2. OXYCODONE [Concomitant]
     Indication: PAIN
     Dosage: UNK
     Dates: start: 20111103
  3. BENAZEPRIL [Concomitant]
     Indication: HYPERTENSION
     Dosage: UNK
     Dates: start: 20120127
  4. ONDANSETRON [Concomitant]
     Indication: NAUSEA
     Dosage: UNK
     Dates: start: 20120131
  5. TEMSIROLIMUS [Suspect]
     Indication: COLON CANCER
     Dosage: 25 MG, WEEKLY
     Route: 042
     Dates: start: 20120124, end: 20120410
  6. CYCLOBENZAPRINE [Concomitant]
     Indication: MUSCLE SPASMS
     Dosage: UNK
     Dates: start: 20111218
  7. AXITINIB [Suspect]
     Indication: COLON CANCER
     Dosage: 3 MG, TWICE DAILY FOR 14 DAYS
     Route: 048
     Dates: start: 20120124, end: 20120412
  8. TAMSULOSIN [Concomitant]
     Indication: BENIGN PROSTATIC HYPERPLASIA
     Dosage: UNK
     Dates: start: 20100607
  9. MORPHINE [Concomitant]
     Indication: PAIN
     Dosage: UNK
     Dates: start: 20110929
  10. PROCHLORPERAZINE [Concomitant]
     Indication: NAUSEA
     Dosage: UNK
     Dates: start: 20110520
  11. LOPID [Concomitant]
     Indication: HYPERTRIGLYCERIDAEMIA
     Dosage: UNK
     Dates: start: 20120207
  12. MAGIC MOUTHWASH [Concomitant]
     Indication: MUCOSAL INFLAMMATION
  13. AMLODIPINE [Concomitant]
     Indication: HYPERTENSION
     Dosage: UNK
     Dates: start: 20120127

REACTIONS (1)
  - PNEUMONIA [None]
